FAERS Safety Report 4437747-7 (Version None)
Quarter: 2004Q3

REPORT INFORMATION
  Report Type: 
  Country: None (occurrence: None)
  Receive Date: 20040830
  Receipt Date: 20040830
  Transmission Date: 20050211
  Serious: Yes (Other)
  Sender: FDA-Public Use
  Company Number: None

PATIENT
  Age: 36 Year
  Sex: Female
  Weight: 68.0396 kg

DRUGS (8)
  1. AMBIEN [Suspect]
     Dosage: 10 MG X AT BED ORAL
     Route: 048
     Dates: start: 20040810, end: 20040810
  2. BUSPIRONE HCL [Concomitant]
  3. PAROXETINE HCL [Concomitant]
  4. BUPROPION HCL [Concomitant]
  5. SPIRONOLACTONE [Concomitant]
  6. TRAZODONE [Concomitant]
  7. CLINDAGEL [Concomitant]
  8. TAZORAC [Concomitant]

REACTIONS (8)
  - DISORIENTATION [None]
  - FATIGUE [None]
  - FEELING ABNORMAL [None]
  - GAIT DISTURBANCE [None]
  - POLLAKIURIA [None]
  - RESTLESSNESS [None]
  - SOMNOLENCE [None]
  - VISUAL DISTURBANCE [None]
